FAERS Safety Report 9258652 (Version 1)
Quarter: 2013Q1

REPORT INFORMATION
  Report Type: Spontaneous
  Country: US (occurrence: None)
  Receive Date: 20121212
  Receipt Date: 20121212
  Transmission Date: 20140127
  Serious: No
  Sender: FDA-Public Use
  Company Number: 1211USA005995

PATIENT
  Sex: Female

DRUGS (3)
  1. PEGINTRON [Suspect]
     Indication: HEPATITIS C
     Route: 058
  2. VICTRELIS [Suspect]
     Indication: HEPATITIS C
  3. RIBASPHERE [Suspect]
     Indication: HEPATITIS C

REACTIONS (4)
  - Nausea [None]
  - Fatigue [None]
  - Dyspnoea [None]
  - Influenza like illness [None]
